FAERS Safety Report 7191229-0 (Version None)
Quarter: 2010Q4

REPORT INFORMATION
  Report Type: 
  Country: None (occurrence: None)
  Receive Date: 20101223
  Receipt Date: 20101210
  Transmission Date: 20110411
  Serious: Yes (Hospitalization)
  Sender: FDA-Public Use
  Company Number: GB-CELGENEUS-167-C5013-10100832

PATIENT
  Sex: Male
  Weight: 86.7 kg

DRUGS (4)
  1. CC-5013\PLACEBO [Suspect]
     Indication: PROSTATE CANCER
     Route: 048
     Dates: start: 20101001, end: 20101011
  2. DOCETAXEL [Suspect]
     Indication: PROSTATE CANCER
     Route: 065
     Dates: start: 20101001
  3. PREDNISONE [Suspect]
     Indication: PROSTATE CANCER
     Route: 065
     Dates: start: 20101001, end: 20101011
  4. PREDNISONE [Suspect]
     Route: 065

REACTIONS (1)
  - NEUTROPENIA [None]
